FAERS Safety Report 4442189-4 (Version None)
Quarter: 2004Q3

REPORT INFORMATION
  Report Type: 
  Country: None (occurrence: None)
  Receive Date: 20040903
  Receipt Date: 20040727
  Transmission Date: 20050211
  Serious: Yes (Other)
  Sender: FDA-Public Use
  Company Number: 2004UW15792

PATIENT
  Age: 46 Year
  Sex: Female
  Weight: 83.0083 kg

DRUGS (8)
  1. CRESTOR [Suspect]
     Indication: HYPERCHOLESTEROLAEMIA
  2. NAPROSYN [Concomitant]
  3. PREVACID [Concomitant]
  4. NO MATCH [Concomitant]
  5. ALLOPURINOL [Concomitant]
  6. SUDAFED S.A. [Concomitant]
  7. FLONASE [Concomitant]
  8. LEVAQUIN [Concomitant]

REACTIONS (3)
  - ARTHRALGIA [None]
  - FIBROMYALGIA [None]
  - MYALGIA [None]
